FAERS Safety Report 10230864 (Version 1)
Quarter: 2014Q2

REPORT INFORMATION
  Report Type: Spontaneous
  Country: US (occurrence: None)
  Receive Date: 20140610
  Receipt Date: 20140610
  Transmission Date: 20141212
  Serious: Yes (Hospitalization)
  Sender: FDA-Public Use
  Company Number: None

PATIENT
  Age: 61 Year
  Sex: Male
  Weight: 92.7 kg

DRUGS (2)
  1. CARBOPLATIN [Suspect]
     Dates: end: 20140520
  2. PACLITAXEL (TAXOL) [Suspect]
     Dates: end: 20140520

REACTIONS (8)
  - Asthenia [None]
  - Oesophageal pain [None]
  - Decreased appetite [None]
  - Fatigue [None]
  - Hypokalaemia [None]
  - Sinus tachycardia [None]
  - Dizziness [None]
  - Dyspnoea exertional [None]
